FAERS Safety Report 25981765 (Version 3)
Quarter: 2025Q4

REPORT INFORMATION
  Report Type: Spontaneous
  Country: EU (occurrence: EU)
  Receive Date: 20251031
  Receipt Date: 20251202
  Transmission Date: 20260118
  Serious: Yes (Death, Hospitalization, Other)
  Sender: BRISTOL-MYERS SQUIBB COMPANY
  Company Number: EU-ABBVIE-6514383

PATIENT
  Age: 60 Year
  Sex: Male

DRUGS (4)
  1. AZACITIDINE [Suspect]
     Active Substance: AZACITIDINE
     Indication: Acute myeloid leukaemia
     Dosage: CYCLE 1
  2. AZACITIDINE [Suspect]
     Active Substance: AZACITIDINE
     Dosage: CYCLE 2
  3. VENETOCLAX [Suspect]
     Active Substance: VENETOCLAX
     Indication: Acute myeloid leukaemia
     Dosage: CYCLE 1
     Route: 048
  4. VENETOCLAX [Suspect]
     Active Substance: VENETOCLAX
     Dosage: CYCLE 2
     Route: 048

REACTIONS (3)
  - Pancytopenia [Fatal]
  - Acute respiratory failure [Fatal]
  - Pneumonia [Fatal]
